FAERS Safety Report 17418108 (Version 1)
Quarter: 2020Q1

REPORT INFORMATION
  Report Type: Spontaneous
  Country: US (occurrence: US)
  Receive Date: 20200130
  Receipt Date: 20200130
  Transmission Date: 20200409
  Serious: Yes (Hospitalization)
  Sender: FDA-Public Use
  Company Number: None

PATIENT
  Age: 33 Year
  Sex: Male
  Weight: 79.83 kg

DRUGS (1)
  1. CARBAMAZEPINE (CARBAMAZEPINE 200MG TAB) [Suspect]
     Active Substance: CARBAMAZEPINE
     Route: 048
     Dates: start: 20190814, end: 20190816

REACTIONS (3)
  - Leukopenia [None]
  - Agranulocytosis [None]
  - Thrombocytopenia [None]

NARRATIVE: CASE EVENT DATE: 20190816
